FAERS Safety Report 5738792-1 (Version None)
Quarter: 2008Q2

REPORT INFORMATION
  Report Type: 
  Country: None (occurrence: None)
  Receive Date: 20080515
  Receipt Date: 20080324
  Transmission Date: 20081010
  Serious: No
  Sender: FDA-Public Use
  Company Number: A0712980A

PATIENT
  Age: 65 Year
  Sex: Male
  Weight: 92.7 kg

DRUGS (2)
  1. VERAMYST [Suspect]
     Indication: NASAL CONGESTION
     Dosage: 4SPR PER DAY
     Route: 045
     Dates: start: 20070521
  2. AFRIN [Concomitant]

REACTIONS (1)
  - DRUG INEFFECTIVE [None]
